FAERS Safety Report 25515311 (Version 3)
Quarter: 2025Q4

REPORT INFORMATION
  Report Type: Spontaneous
  Country: EU (occurrence: EU)
  Receive Date: 20250704
  Receipt Date: 20251209
  Transmission Date: 20260118
  Serious: Yes (Other)
  Sender: RANBAXY
  Company Number: EU-SUN PHARMACEUTICAL INDUSTRIES LTD-2025RR-514937

PATIENT
  Age: 41 Year
  Sex: Male

DRUGS (5)
  1. PREGABALIN [Suspect]
     Active Substance: PREGABALIN
     Indication: Withdrawal syndrome
     Dosage: 750 MILLIGRAM
     Route: 065
  2. QUETIAPINE [Suspect]
     Active Substance: QUETIAPINE
     Indication: Withdrawal syndrome
     Dosage: 800 MILLIGRAM, DAILY
     Route: 065
  3. LAMOTRIGINE [Suspect]
     Active Substance: LAMOTRIGINE
     Indication: Withdrawal syndrome
     Dosage: 400 MILLIGRAM
     Route: 065
  4. HALOPERIDOL [Suspect]
     Active Substance: HALOPERIDOL
     Indication: Withdrawal syndrome
     Dosage: 5 MILLIGRAM
     Route: 065
  5. VALPROATE SODIUM [Suspect]
     Active Substance: VALPROATE SODIUM
     Indication: Withdrawal syndrome
     Dosage: 1000 MILLIGRAM
     Route: 065

REACTIONS (2)
  - Drug resistance [Unknown]
  - Condition aggravated [Recovering/Resolving]
